FAERS Safety Report 9541357 (Version 1)
Quarter: 2013Q3

REPORT INFORMATION
  Report Type: Spontaneous
  Country: US (occurrence: US)
  Receive Date: 20130923
  Receipt Date: 20130923
  Transmission Date: 20140515
  Serious: No
  Sender: FDA-Public Use
  Company Number: US-009507513-1309USA007197

PATIENT
  Sex: Female

DRUGS (10)
  1. VICTRELIS [Suspect]
     Indication: HEPATITIS C
     Dosage: 800 MG, TID
     Route: 048
     Dates: start: 20130517
  2. PEGINTRON [Suspect]
     Indication: HEPATITIS C
  3. REBETOL [Suspect]
     Indication: HEPATITIS C
     Dosage: 1 DF, BID
     Route: 048
     Dates: start: 20130419, end: 2013
  4. XOPENEX [Concomitant]
     Dosage: 2 PUFFS EVERY 4-6 HOURS, PRN
  5. ACETAMINOPHEN (+) HYDROCODONE BITARTRATE [Concomitant]
     Dosage: 5/325 MG EVERY 12 HOURS, PRN
  6. POTASSIUM CHLORIDE [Concomitant]
     Dosage: 20 MCG PACKET MIXED WITH LIQUID, QD
  7. AMLODIPINE [Concomitant]
     Dosage: 5 MG, QD
  8. HYDROCHLOROTHIAZIDE [Concomitant]
     Dosage: 25 MG, QD
  9. CALCIUM (UNSPECIFIED) (+) VITAMINS (UNSPECIFIED) [Concomitant]
     Dosage: 1 DF, TID
  10. QVAR [Concomitant]
     Dosage: 2 PUFFS, BID

REACTIONS (1)
  - Haemoglobin decreased [Unknown]
